FAERS Safety Report 5822943-4 (Version None)
Quarter: 2008Q3

REPORT INFORMATION
  Report Type: 
  Country: None (occurrence: None)
  Receive Date: 20080724
  Receipt Date: 20080724
  Transmission Date: 20090109
  Serious: Yes (Life-Threatening, Hospitalization, Other)
  Sender: FDA-Public Use
  Company Number: None

PATIENT
  Sex: Female
  Weight: 47.1741 kg

DRUGS (1)
  1. TERBINAFINE HCL [Suspect]
     Indication: ONYCHOMYCOSIS
     Dosage: 1 TAB ONCE A DAY
     Dates: start: 20080525, end: 20080605

REACTIONS (10)
  - BLOOD BILIRUBIN INCREASED [None]
  - CHROMATURIA [None]
  - HEADACHE [None]
  - HEPATITIS [None]
  - JAUNDICE [None]
  - LIVER DISORDER [None]
  - MALAISE [None]
  - PAIN [None]
  - PANCREATIC DISORDER [None]
  - RENAL DISORDER [None]
